FAERS Safety Report 11442029 (Version 2)
Quarter: 2016Q1

REPORT INFORMATION
  Report Type: Report from Study
  Country: CA (occurrence: CA)
  Receive Date: 20150901
  Receipt Date: 20160316
  Transmission Date: 20160525
  Serious: Yes (Hospitalization)
  Sender: FDA-Public Use
  Company Number: CA-ABBVIE-15K-028-1453092-00

PATIENT
  Age: 27 Year
  Sex: Female

DRUGS (3)
  1. EPIVAL [Suspect]
     Active Substance: DIVALPROEX SODIUM
     Route: 048
     Dates: start: 2016
  2. HUMIRA [Suspect]
     Active Substance: ADALIMUMAB
     Indication: RHEUMATOID ARTHRITIS
     Route: 058
     Dates: start: 20141202
  3. EPIVAL [Suspect]
     Active Substance: DIVALPROEX SODIUM
     Indication: BIPOLAR DISORDER
     Route: 048
     Dates: end: 2016

REACTIONS (4)
  - Antipsychotic drug level below therapeutic [Not Recovered/Not Resolved]
  - Confusional state [Not Recovered/Not Resolved]
  - Bipolar disorder [Not Recovered/Not Resolved]
  - Malaise [Not Recovered/Not Resolved]

NARRATIVE: CASE EVENT DATE: 2016
